FAERS Safety Report 8815944 (Version 3)
Quarter: 2014Q3

REPORT INFORMATION
  Report Type: Report from Study
  Country: US (occurrence: US)
  Receive Date: 20120928
  Receipt Date: 20140911
  Transmission Date: 20150326
  Serious: Yes (Death, Other)
  Sender: FDA-Public Use
  Company Number: US-ROCHE-1125698

PATIENT
  Sex: Female

DRUGS (14)
  1. PEPCID [Concomitant]
     Active Substance: FAMOTIDINE
  2. VICODIN [Concomitant]
     Active Substance: ACETAMINOPHEN\HYDROCODONE BITARTRATE
  3. DARVOCET [Concomitant]
     Active Substance: ACETAMINOPHEN\PROPOXYPHENE HYDROCHLORIDE
  4. 5-FU [Concomitant]
     Active Substance: FLUOROURACIL
  5. NAVELBINE [Concomitant]
     Active Substance: VINORELBINE TARTRATE
  6. LEVAQUIN [Concomitant]
     Active Substance: LEVOFLOXACIN
  7. CLONAZEPAM. [Suspect]
     Active Substance: CLONAZEPAM
     Indication: BREAST CANCER METASTATIC
     Route: 065
  8. METHOTREXATE [Concomitant]
     Active Substance: METHOTREXATE
  9. HERCEPTIN [Suspect]
     Active Substance: TRASTUZUMAB
     Indication: BREAST CANCER METASTATIC
     Route: 065
     Dates: start: 19990109
  10. CYTOXAN [Concomitant]
     Active Substance: CYCLOPHOSPHAMIDE
  11. AREDIA [Concomitant]
     Active Substance: PAMIDRONATE DISODIUM
  12. FILGRASTIM [Suspect]
     Active Substance: FILGRASTIM
     Indication: BREAST CANCER METASTATIC
     Route: 065
  13. ARIMIDEX [Concomitant]
     Active Substance: ANASTROZOLE
  14. FLOXIL [Concomitant]

REACTIONS (4)
  - Death [Fatal]
  - Metastases to liver [Unknown]
  - Off label use [Unknown]
  - Metastases to bone [Unknown]
